FAERS Safety Report 11822013 (Version 1)
Quarter: 2015Q4

REPORT INFORMATION
  Report Type: Spontaneous
  Country: US (occurrence: US)
  Receive Date: 20151210
  Receipt Date: 20151210
  Transmission Date: 20160305
  Serious: No
  Sender: FDA-Public Use
  Company Number: US-JNJFOC-20150511061

PATIENT
  Age: 87 Year
  Sex: Female

DRUGS (7)
  1. ISOSORBIDE. [Concomitant]
     Active Substance: ISOSORBIDE
  2. AMLODIPINE [Concomitant]
     Active Substance: AMLODIPINE BESYLATE
  3. GINKO BILOBA [Concomitant]
     Active Substance: GINKGO
  4. IMBRUVICA [Suspect]
     Active Substance: IBRUTINIB
     Indication: CHRONIC LYMPHOCYTIC LEUKAEMIA
     Route: 048
     Dates: start: 20150417
  5. GABAPENTIN. [Concomitant]
     Active Substance: GABAPENTIN
  6. IMBRUVICA [Suspect]
     Active Substance: IBRUTINIB
     Indication: CHRONIC LYMPHOCYTIC LEUKAEMIA
     Route: 048
     Dates: start: 20150314, end: 20150527
  7. OMEPRAZOLE. [Concomitant]
     Active Substance: OMEPRAZOLE

REACTIONS (18)
  - Pollakiuria [Unknown]
  - Haemoglobin decreased [Recovering/Resolving]
  - Cellulitis [Unknown]
  - Red blood cell count increased [Unknown]
  - Platelet count decreased [Unknown]
  - Weight decreased [Unknown]
  - Nasal congestion [Unknown]
  - Back injury [Not Recovered/Not Resolved]
  - Rash macular [Unknown]
  - Faeces discoloured [Unknown]
  - Contusion [Not Recovered/Not Resolved]
  - Decreased appetite [Unknown]
  - Feeling cold [Unknown]
  - Incorrect dose administered [Not Recovered/Not Resolved]
  - Asthenia [Unknown]
  - White blood cell count increased [Recovering/Resolving]
  - Headache [Unknown]
  - Peripheral swelling [Unknown]

NARRATIVE: CASE EVENT DATE: 2015
